FAERS Safety Report 10184331 (Version 2)
Quarter: 2014Q2

REPORT INFORMATION
  Report Type: Spontaneous
  Country: US (occurrence: US)
  Receive Date: 20140520
  Receipt Date: 20140604
  Transmission Date: 20141212
  Serious: No
  Sender: FDA-Public Use
  Company Number: US-009507513-1405USA005853

PATIENT
  Age: 55 Year
  Sex: Male

DRUGS (4)
  1. REBETOL [Suspect]
     Indication: HEPATITIS C
     Dosage: 800 MG, QD
     Route: 048
  2. PEGINTRON [Suspect]
     Indication: HEPATITIS C
     Dosage: 180 MICROGRAM, QW
  3. TELAPREVIR [Suspect]
     Indication: HEPATITIS C
     Dosage: 750 MG, Q8H, 12WEEKS
  4. TACROLIMUS [Suspect]
     Indication: HEPATITIS C
     Dosage: 0.5 MG, QW

REACTIONS (1)
  - Anaemia [Unknown]
